FAERS Safety Report 7176409-2 (Version None)
Quarter: 2010Q4

REPORT INFORMATION
  Report Type: 
  Country: None (occurrence: None)
  Receive Date: 20101220
  Receipt Date: 20101214
  Transmission Date: 20110411
  Serious: Yes (Hospitalization)
  Sender: FDA-Public Use
  Company Number: US-RANBAXY-2010US-40347

PATIENT
  Age: 20 Year
  Sex: Male

DRUGS (4)
  1. CEFTRIAXONE [Suspect]
     Indication: PROPHYLAXIS
     Dosage: ONE DOSE
     Route: 065
  2. DOXYCYCLINE HYDROCHLORIDE [Suspect]
     Indication: PROPHYLAXIS
     Dosage: UNK
     Route: 065
  3. VANCOMYCIN [Suspect]
     Indication: PROPHYLAXIS
     Dosage: ONE PREOPERATIVE DOSE
     Route: 065
  4. SEPTRA [Suspect]
     Indication: PROPHYLAXIS

REACTIONS (8)
  - DISSEMINATED INTRAVASCULAR COAGULATION [None]
  - DRUG RASH WITH EOSINOPHILIA AND SYSTEMIC SYMPTOMS [None]
  - HUMAN HERPESVIRUS 6 INFECTION [None]
  - LYMPHADENOPATHY [None]
  - RENAL FAILURE [None]
  - RESPIRATORY FAILURE [None]
  - SEPTIC SHOCK [None]
  - SPLENIC INFARCTION [None]
